FAERS Safety Report 22608920 (Version 2)
Quarter: 2023Q2

REPORT INFORMATION
  Report Type: Report from Study
  Country: NL (occurrence: NL)
  Receive Date: 20230616
  Receipt Date: 20230623
  Transmission Date: 20230721
  Serious: Yes (Other)
  Sender: FDA-Public Use
  Company Number: NL-ABBVIE-4736769

PATIENT
  Sex: Male

DRUGS (30)
  1. CARBIDOPA\LEVODOPA [Suspect]
     Active Substance: CARBIDOPA\LEVODOPA
     Indication: Parkinson^s disease
     Dosage: MD: 11.1 ML, CD: 3.9 ML/H, ED: 3.8 ML, CND: 1.9 ML/H, END: 3.8 ML
     Route: 050
  2. CARBIDOPA\LEVODOPA [Suspect]
     Active Substance: CARBIDOPA\LEVODOPA
     Dosage: MD: 9.2 ML, CD: 3.7 ML/H, ED: 4.0 ML, CND: 1.5 ML/H, END: 3.4 ML
     Route: 050
  3. CARBIDOPA\LEVODOPA [Suspect]
     Active Substance: CARBIDOPA\LEVODOPA
     Dosage: MD: 9.6 ML
     Route: 050
  4. CARBIDOPA\LEVODOPA [Suspect]
     Active Substance: CARBIDOPA\LEVODOPA
     Dosage: CND: 3.8 ML/H, END: 1.7 ML
     Route: 050
  5. CARBIDOPA\LEVODOPA [Suspect]
     Active Substance: CARBIDOPA\LEVODOPA
     Dosage: CND: 1.2 ML/H, END: 3.4 ML?REMAINS AT 24 HOURS
     Route: 050
  6. CARBIDOPA\LEVODOPA [Suspect]
     Active Substance: CARBIDOPA\LEVODOPA
     Dosage: CND: 3.4 ML/H, END: 1.7 ML
     Route: 050
  7. CARBIDOPA\LEVODOPA [Suspect]
     Active Substance: CARBIDOPA\LEVODOPA
     Dosage: MD: 10.1 ML, CD: 3.9 ML/H, ED: 3.8 ML
     Route: 050
  8. CARBIDOPA\LEVODOPA [Suspect]
     Active Substance: CARBIDOPA\LEVODOPA
     Dosage: MD: 9.2 ML, CD: 3.7 ML/H, ED: 4.0 ML, CND: 1.5 ML/H, END: 3.4 ML
     Route: 050
  9. CARBIDOPA\LEVODOPA [Suspect]
     Active Substance: CARBIDOPA\LEVODOPA
     Dosage: MD: 11.1 ML, CD: 3.9 ML/H, ED: 3.8 ML, CND: 1.9 ML/H, END: 3.8 ML
     Route: 050
  10. CARBIDOPA\LEVODOPA [Suspect]
     Active Substance: CARBIDOPA\LEVODOPA
     Dosage: MD: 10.1 ML, CD: 3.9 ML/H, ED: 3.8 ML
     Route: 050
  11. CARBIDOPA\LEVODOPA [Suspect]
     Active Substance: CARBIDOPA\LEVODOPA
     Dosage: MD: 10.1 ML, CD: 3.9 ML/H, ED: 3.8 ML, CND: 1.9 ML/H?REMAINS AT 16 HOURS
     Route: 050
  12. CARBIDOPA\LEVODOPA [Suspect]
     Active Substance: CARBIDOPA\LEVODOPA
     Dosage: MD: 13.0 ML, CD: 3.7 ML/H, ED: 3.6 ML?REMAINS AT 24 HOURS
     Route: 050
  13. CARBIDOPA\LEVODOPA [Suspect]
     Active Substance: CARBIDOPA\LEVODOPA
     Dosage: MD: 9.2ML, CD: 3.7ML/H, ED: 4.0ML
     Route: 050
  14. CARBIDOPA\LEVODOPA [Suspect]
     Active Substance: CARBIDOPA\LEVODOPA
     Dosage: CND: 3.8 ML/H, END: 1.7 ML
     Route: 050
  15. CARBIDOPA\LEVODOPA [Suspect]
     Active Substance: CARBIDOPA\LEVODOPA
     Dosage: MD: 9.6 ML?DURATION TEXT: REMAINS AT 24 HOURS
     Route: 050
  16. CARBIDOPA\LEVODOPA [Suspect]
     Active Substance: CARBIDOPA\LEVODOPA
     Route: 050
  17. CARBIDOPA\LEVODOPA [Suspect]
     Active Substance: CARBIDOPA\LEVODOPA
     Dosage: DURATION TEXT: REMAINS AT 16 HOURS
     Route: 050
     Dates: start: 20220503
  18. CARBIDOPA\LEVODOPA [Suspect]
     Active Substance: CARBIDOPA\LEVODOPA
     Dosage: MD: 10.1 ML, CD: 3.9 ML/H, ED: 3.8 ML, CND: 1.9 ML/H
     Route: 050
  19. CARBIDOPA\LEVODOPA [Suspect]
     Active Substance: CARBIDOPA\LEVODOPA
     Dosage: CND: 3.4 ML/H, END: 1.7 ML?DURATION TEXT: REMAINS AT 24 HOURS
     Route: 050
  20. CARBIDOPA\LEVODOPA [Suspect]
     Active Substance: CARBIDOPA\LEVODOPA
     Route: 050
     Dates: start: 20220503
  21. CARBIDOPA\LEVODOPA [Suspect]
     Active Substance: CARBIDOPA\LEVODOPA
     Dosage: MD: 9.2ML, CD: 3.7ML/H, ED: 4.0ML
     Route: 050
  22. SYMMETREL [Concomitant]
     Active Substance: AMANTADINE HYDROCHLORIDE
     Indication: Parkinson^s disease
     Dosage: FREQUENCY TEXT: 2 TIMES A DAY 1 UNIT AT 8.00, 17.00
     Route: 048
  23. CARBIDOPA\LEVODOPA [Concomitant]
     Active Substance: CARBIDOPA\LEVODOPA
     Indication: Parkinson^s disease
     Dosage: 250/25 MG
     Route: 048
  24. CARBIDOPA\LEVODOPA [Concomitant]
     Active Substance: CARBIDOPA\LEVODOPA
     Indication: Parkinson^s disease
     Dosage: 250/25 MG?FREQUENCY TEXT: ONCE A DAY 1 UNIT AT 22.00
     Route: 048
  25. ENTACAPONE [Concomitant]
     Active Substance: ENTACAPONE
     Indication: Parkinson^s disease
     Dosage: FREQUENCY TEXT: AT 22.00
     Route: 048
  26. Levodopa/Carbidopa/Entecapone [Concomitant]
     Indication: Parkinson^s disease
     Dosage: 150/37.5/200 MG
     Route: 048
  27. Levodopa/Carbidopa/Entecapone [Concomitant]
     Indication: Parkinson^s disease
     Dosage: 150/37.5/200 MG?FREQUENCY TEXT: AT 16.00, 19.00
     Route: 048
  28. Levodopa/Carbidopa/Entecapone [Concomitant]
     Indication: Parkinson^s disease
     Dosage: 200/50/200 MG
     Route: 048
  29. Levodopa/Carbidopa/Entecapone [Concomitant]
     Indication: Parkinson^s disease
     Dosage: 200/50/200 MG?FREQUENCY TEXT: 5 TIMES A DAY 1 UNIT AT 7.00-10.00-13.00
     Route: 048
  30. ROTIGOTINE [Concomitant]
     Active Substance: ROTIGOTINE
     Indication: Parkinson^s disease
     Dosage: FREQUENCY TEXT: AT 8.00
     Route: 062

REACTIONS (20)
  - Overdose [Not Recovered/Not Resolved]
  - Dizziness [Not Recovered/Not Resolved]
  - Unevaluable event [Not Recovered/Not Resolved]
  - Intentional underdose [Not Recovered/Not Resolved]
  - Insomnia [Recovering/Resolving]
  - Dyskinesia [Not Recovered/Not Resolved]
  - Blood glucose abnormal [Not Recovered/Not Resolved]
  - Underdose [Not Recovered/Not Resolved]
  - Muscle rigidity [Not Recovered/Not Resolved]
  - Depressed mood [Not Recovered/Not Resolved]
  - Poor quality sleep [Unknown]
  - Emotional disorder [Not Recovered/Not Resolved]
  - Musculoskeletal disorder [Not Recovered/Not Resolved]
  - On and off phenomenon [Not Recovered/Not Resolved]
  - Stoma site erythema [Not Recovered/Not Resolved]
  - Restlessness [Not Recovered/Not Resolved]
  - Memory impairment [Unknown]
  - Emotional distress [Not Recovered/Not Resolved]
  - Psychiatric symptom [Not Recovered/Not Resolved]
  - Malaise [Not Recovered/Not Resolved]

NARRATIVE: CASE EVENT DATE: 20230416
